FAERS Safety Report 19306364 (Version 2)
Quarter: 2021Q2

REPORT INFORMATION
  Report Type: Spontaneous
  Country: US (occurrence: US)
  Receive Date: 20210526
  Receipt Date: 20210608
  Transmission Date: 20210717
  Serious: Yes (Other)
  Sender: FDA-Public Use
  Company Number: US-BIOVITRUM-2021US4727

PATIENT
  Sex: Female

DRUGS (8)
  1. SYMBICORT [Concomitant]
     Active Substance: BUDESONIDE\FORMOTEROL FUMARATE DIHYDRATE
     Indication: TRACHEOMALACIA
  2. CBD SUPPLEMENT [Concomitant]
     Indication: SWELLING
  3. ILARIS [Concomitant]
     Active Substance: CANAKINUMAB
     Indication: CRYOPYRIN ASSOCIATED PERIODIC SYNDROME
  4. LEVALBUTEROL. [Concomitant]
     Active Substance: LEVALBUTEROL
     Indication: PAIN
  5. SINGULAIR [Concomitant]
     Active Substance: MONTELUKAST SODIUM
     Indication: TRACHEOMALACIA
  6. CBD SUPPLEMENT [Concomitant]
     Indication: PAIN
  7. KINERET [Suspect]
     Active Substance: ANAKINRA
     Indication: CRYOPYRIN ASSOCIATED PERIODIC SYNDROME
     Route: 058
     Dates: start: 2014
  8. LEVALBUTEROL. [Concomitant]
     Active Substance: LEVALBUTEROL
     Indication: SWELLING

REACTIONS (3)
  - Off label use [Unknown]
  - Condition aggravated [Not Recovered/Not Resolved]
  - Cryopyrin associated periodic syndrome [Not Recovered/Not Resolved]

NARRATIVE: CASE EVENT DATE: 2014
